FAERS Safety Report 8178848-X (Version None)
Quarter: 2012Q1

REPORT INFORMATION
  Report Type: 
  Country: None (occurrence: None)
  Receive Date: 20120302
  Receipt Date: 20120218
  Transmission Date: 20120608
  Serious: Yes (Other)
  Sender: FDA-Public Use
  Company Number: TR-RANBAXY-2012R1-53245

PATIENT
  Age: 28 Year
  Sex: Female

DRUGS (2)
  1. CIPROFLOXACIN [Suspect]
     Indication: URINARY TRACT INFECTION
     Dosage: UNK
     Route: 065
  2. CIPROFLOXACIN [Suspect]
     Dosage: 1500 MG TWICE DAILY
     Route: 065

REACTIONS (2)
  - TENOSYNOVITIS [None]
  - URTICARIA [None]
